FAERS Safety Report 14322117 (Version 1)
Quarter: 2017Q4

REPORT INFORMATION
  Report Type: Spontaneous
  Country: US (occurrence: US)
  Receive Date: 20171225
  Receipt Date: 20171225
  Transmission Date: 20180321
  Serious: Yes (Life-Threatening, Hospitalization, Other)
  Sender: FDA-Public Use
  Company Number: US-JNJFOC-20171226702

PATIENT
  Age: 20 Year
  Sex: Female

DRUGS (2)
  1. IMODIUM [Suspect]
     Active Substance: LOPERAMIDE HYDROCHLORIDE
     Indication: DRUG WITHDRAWAL SYNDROME
     Dosage: INGEST LARGE QUANTITIES (75 TO 200, 2-MG TABLETS) OF LOPERAMIDE DAILY
     Route: 048
  2. IMODIUM [Suspect]
     Active Substance: LOPERAMIDE HYDROCHLORIDE
     Route: 048

REACTIONS (8)
  - Cardiac arrest [Recovered/Resolved]
  - Drug abuse [Recovered/Resolved]
  - Electrocardiogram QRS complex prolonged [Recovered/Resolved]
  - Torsade de pointes [Recovered/Resolved]
  - Tachycardia [Recovered/Resolved]
  - Arrhythmia [Recovered/Resolved]
  - Electrocardiogram QT prolonged [Recovered/Resolved]
  - Overdose [Recovered/Resolved]
